FAERS Safety Report 25085392 (Version 1)
Quarter: 2025Q1

REPORT INFORMATION
  Report Type: Spontaneous
  Country: US (occurrence: None)
  Receive Date: 20250314
  Receipt Date: 20250314
  Transmission Date: 20250408
  Serious: Yes (Disabling)
  Sender: FDA-CTU
  Company Number: None

PATIENT
  Age: 42 Year
  Sex: Female
  Weight: 69.3 kg

DRUGS (2)
  1. TRETINOIN [Suspect]
     Active Substance: TRETINOIN
     Indication: Prophylaxis
     Dates: start: 20231101, end: 20241024
  2. TRETINOIN [Suspect]
     Active Substance: TRETINOIN
     Indication: Therapeutic skin care topical

REACTIONS (5)
  - Vertigo [None]
  - Tinnitus [None]
  - Tinnitus [None]
  - Papilloedema [None]
  - Vision blurred [None]

NARRATIVE: CASE EVENT DATE: 20241022
